FAERS Safety Report 8248705-9 (Version None)
Quarter: 2012Q1

REPORT INFORMATION
  Report Type: 
  Country: None (occurrence: None)
  Receive Date: 20120331
  Receipt Date: 20120326
  Transmission Date: 20120608
  Serious: Yes (Other)
  Sender: FDA-Public Use
  Company Number: PHHY2012DE019615

PATIENT
  Sex: Male
  Weight: 92 kg

DRUGS (2)
  1. EXTAVIA [Suspect]
     Indication: MULTIPLE SCLEROSIS
     Dosage: 1 ML, QOD
     Route: 058
     Dates: start: 20110222
  2. IBUPROFEN [Suspect]
     Dosage: 500 MG, PRN
     Route: 048

REACTIONS (2)
  - BOWEL MOVEMENT IRREGULARITY [None]
  - COLITIS ULCERATIVE [None]
